FAERS Safety Report 17242033 (Version 1)
Quarter: 2020Q1

REPORT INFORMATION
  Report Type: Report from Study
  Country: HN (occurrence: HN)
  Receive Date: 20200107
  Receipt Date: 20200107
  Transmission Date: 20200409
  Serious: Yes (Death, Hospitalization)
  Sender: FDA-Public Use
  Company Number: NVSC2020HN001083

PATIENT
  Sex: Male

DRUGS (1)
  1. GLIVEC [Suspect]
     Active Substance: IMATINIB MESYLATE
     Indication: CHRONIC MYELOID LEUKAEMIA
     Dosage: 2 DF (2X100 MG)
     Route: 065

REACTIONS (5)
  - Pyrexia [Fatal]
  - Decreased appetite [Fatal]
  - Vomiting [Fatal]
  - Skin discolouration [Fatal]
  - Asthenia [Fatal]
